FAERS Safety Report 7514806-3 (Version None)
Quarter: 2011Q2

REPORT INFORMATION
  Report Type: 
  Country: None (occurrence: None)
  Receive Date: 20110526
  Receipt Date: 20110526
  Transmission Date: 20111010
  Serious: Yes (Hospitalization)
  Sender: FDA-Public Use
  Company Number: None

PATIENT
  Sex: Female
  Weight: 112.1 kg

DRUGS (2)
  1. CARBOPLATIN [Suspect]
     Dosage: 900 MG
     Dates: end: 20110504
  2. TAXOL [Suspect]
     Dosage: 390 MG
     Dates: end: 20110504

REACTIONS (3)
  - DIVERTICULITIS [None]
  - INTESTINAL ADHESION LYSIS [None]
  - DEEP VEIN THROMBOSIS [None]
